FAERS Safety Report 4768096-5 (Version None)
Quarter: 2005Q3

REPORT INFORMATION
  Report Type: 
  Country: None (occurrence: None)
  Receive Date: 20050908
  Receipt Date: 20050908
  Transmission Date: 20060218
  Serious: Yes (Other)
  Sender: FDA-Public Use
  Company Number: None

PATIENT
  Age: 83 Year
  Sex: Male
  Weight: 76.6 kg

DRUGS (2)
  1. PREVACID [Suspect]
     Indication: PROPHYLAXIS
     Dosage: 30 MG BID PEG TUBE
     Dates: start: 20050620, end: 20050712
  2. PREVACID [Suspect]
     Indication: ULCER
     Dosage: 30 MG BID PEG TUBE
     Dates: start: 20050620, end: 20050712

REACTIONS (3)
  - DERMATITIS BULLOUS [None]
  - DRUG ERUPTION [None]
  - ERYTHEMA [None]
